FAERS Safety Report 7595996-3 (Version None)
Quarter: 2011Q3

REPORT INFORMATION
  Report Type: 
  Country: None (occurrence: None)
  Receive Date: 20110707
  Receipt Date: 20110627
  Transmission Date: 20111222
  Serious: Yes (Hospitalization)
  Sender: FDA-Public Use
  Company Number: PHFR2011GB01833

PATIENT
  Sex: Male

DRUGS (4)
  1. CLOZAPINE [Suspect]
     Dosage: 250 MG, DAILY
     Route: 048
  2. CLOZAPINE [Suspect]
     Indication: SCHIZOPHRENIA
     Dosage: 250 MG, DAILY
     Route: 048
     Dates: start: 20081121
  3. CLOZAPINE [Suspect]
     Dosage: 300 MG, AT NIGHT
     Route: 048
     Dates: start: 20110318
  4. MIRTAZAPINE [Concomitant]
     Dosage: 45 MG, DAILY
     Route: 048
     Dates: start: 20080918

REACTIONS (1)
  - INCORRECT DOSE ADMINISTERED [None]
